FAERS Safety Report 15691203 (Version 5)
Quarter: 2020Q2

REPORT INFORMATION
  Report Type: Spontaneous
  Country: US (occurrence: US)
  Receive Date: 20181205
  Receipt Date: 20200610
  Transmission Date: 20200713
  Serious: Yes (Other)
  Sender: FDA-Public Use
  Company Number: PHEH2018US051082

PATIENT
  Sex: Male

DRUGS (1)
  1. TASIGNA [Suspect]
     Active Substance: NILOTINIB
     Indication: CHRONIC MYELOID LEUKAEMIA
     Dosage: 02 DF, BID
     Route: 048
     Dates: start: 20150206, end: 201711

REACTIONS (29)
  - Injury [Unknown]
  - Skin ulcer [Unknown]
  - Osteomyelitis [Unknown]
  - Endocarditis [Unknown]
  - Peripheral vascular disorder [Unknown]
  - Anxiety [Unknown]
  - Back pain [Unknown]
  - Cellulitis [Unknown]
  - Cardiomyopathy [Unknown]
  - Joint dislocation [Unknown]
  - Arteriosclerosis coronary artery [Unknown]
  - Bacteraemia [Unknown]
  - Peripheral artery stenosis [Unknown]
  - Coronary artery disease [Unknown]
  - Peripheral arterial occlusive disease [Unknown]
  - Pain [Unknown]
  - Chronic obstructive pulmonary disease [Unknown]
  - Aphasia [Unknown]
  - Hyponatraemia [Unknown]
  - Depression [Unknown]
  - Hyperlipidaemia [Unknown]
  - Sinus node dysfunction [Unknown]
  - Rib fracture [Unknown]
  - Emotional distress [Unknown]
  - Peripheral artery thrombosis [Unknown]
  - Pain in extremity [Unknown]
  - Carotid artery stenosis [Unknown]
  - Weight decreased [Unknown]
  - Anaemia [Unknown]
